FAERS Safety Report 17457391 (Version 4)
Quarter: 2024Q1

REPORT INFORMATION
  Report Type: Report from Study
  Country: NL (occurrence: NL)
  Receive Date: 20200225
  Receipt Date: 20240229
  Transmission Date: 20240409
  Serious: Yes (Hospitalization, Other)
  Sender: FDA-Public Use
  Company Number: NL-ABBVIE-16P-114-1809733-00

PATIENT
  Age: 64 Year
  Sex: Male

DRUGS (9)
  1. HUMIRA [Suspect]
     Active Substance: ADALIMUMAB
     Indication: Colitis ulcerative
     Route: 058
     Dates: start: 20120706
  2. RABEPRAZOLE [Concomitant]
     Active Substance: RABEPRAZOLE
     Indication: Hyperchlorhydria
     Route: 048
     Dates: start: 20120921
  3. ASPIRIN [Concomitant]
     Active Substance: ASPIRIN
     Indication: Anticoagulant therapy
     Route: 048
     Dates: start: 20111109
  4. HYDROCHLOROTHIAZIDE\VALSARTAN [Concomitant]
     Active Substance: HYDROCHLOROTHIAZIDE\VALSARTAN
     Indication: Hypertension
     Dosage: 160 + 25 MG
     Route: 048
     Dates: start: 20040909
  5. ASCAL [Concomitant]
     Indication: Anticoagulant therapy
     Route: 048
     Dates: start: 20040909
  6. AMITRIPTYLINE [Concomitant]
     Active Substance: AMITRIPTYLINE
     Indication: Abdominal pain
     Route: 048
     Dates: start: 20140227
  7. TEMAZEPAM [Concomitant]
     Active Substance: TEMAZEPAM
     Indication: Stress
     Dosage: TIME INTERVAL: AS NECESSARY
     Route: 048
     Dates: start: 20160620
  8. MOVICOLON [Concomitant]
     Active Substance: POLYETHYLENE GLYCOL 3350\POTASSIUM CHLORIDE\SODIUM BICARBONATE\SODIUM CHLORIDE
     Indication: Dyschezia
     Route: 048
     Dates: start: 20150921
  9. METOCLOPRAMIDE [Concomitant]
     Active Substance: METOCLOPRAMIDE
     Indication: Colitis ulcerative
     Dosage: TIME INTERVAL: AS NECESSARY
     Route: 048
     Dates: start: 20160322

REACTIONS (1)
  - Coeliac artery stenosis [Recovered/Resolved]

NARRATIVE: CASE EVENT DATE: 20160719
